FAERS Safety Report 8463687 (Version 2)
Quarter: 2012Q4

REPORT INFORMATION
  Report Type: 
  Country: US (occurrence: US)
  Receive Date: 20120316
  Receipt Date: 20121029
  Transmission Date: 20130627
  Serious: Yes (Other)
  Sender: FDA-Public Use
  Company Number: US-BAYER-2012-023584

PATIENT
  Age: 19 Year
  Sex: Female
  Weight: 81.63 kg

DRUGS (4)
  1. YASMIN [Suspect]
  2. OCELLA [Suspect]
     Dosage: UNK
     Dates: start: 200903, end: 200909
  3. BACTRIM [Concomitant]
  4. FIORINAL CODEINA [Concomitant]

REACTIONS (10)
  - Superior sagittal sinus thrombosis [None]
  - Transverse sinus thrombosis [None]
  - Jugular vein thrombosis [None]
  - Injury [None]
  - Pain [None]
  - Emotional distress [None]
  - Headache [None]
  - General physical health deterioration [None]
  - Anxiety [None]
  - Pain [None]
